FAERS Safety Report 8872107 (Version 3)
Quarter: 2013Q1

REPORT INFORMATION
  Report Type: Spontaneous
  Country: GB (occurrence: GB)
  Receive Date: 20121030
  Receipt Date: 20130213
  Transmission Date: 20140127
  Serious: Yes (Other)
  Sender: FDA-Public Use
  Company Number: GB-ROCHE-1149295

PATIENT
  Age: 42 Year
  Sex: Male

DRUGS (4)
  1. RIBAVIRIN [Suspect]
     Indication: HEPATITIS C
     Dosage: 2 TABLETS TWICE A DAY
     Route: 065
     Dates: start: 20120917
  2. RIBAVIRIN [Suspect]
     Dosage: 1 TABLETS TWICE A DAY
     Route: 065
  3. PEGINTERFERON ALFA-2B [Suspect]
     Indication: HEPATITIS C
     Route: 058
     Dates: start: 20120917
  4. TELAPREVIR [Suspect]
     Indication: HEPATITIS C
     Route: 048
     Dates: start: 20120917

REACTIONS (8)
  - Anaemia [Not Recovered/Not Resolved]
  - Haemoptysis [Not Recovered/Not Resolved]
  - Weight decreased [Not Recovered/Not Resolved]
  - Rash [Not Recovered/Not Resolved]
  - Fatigue [Unknown]
  - Pruritus [Unknown]
  - Insomnia [Not Recovered/Not Resolved]
  - Mouth ulceration [Not Recovered/Not Resolved]
